FAERS Safety Report 19593684 (Version 2)
Quarter: 2021Q3

REPORT INFORMATION
  Report Type: Spontaneous
  Country: DE (occurrence: DE)
  Receive Date: 20210722
  Receipt Date: 20210813
  Transmission Date: 20211014
  Serious: Yes (Hospitalization)
  Sender: FDA-Public Use
  Company Number: DE-DRREDDYS-SPO/GER/21/0137874

PATIENT
  Age: 69 Year
  Sex: Female
  Weight: 74 kg

DRUGS (4)
  1. VENLAFAXINE [Suspect]
     Active Substance: VENLAFAXINE HYDROCHLORIDE
     Indication: DEPRESSION
     Dates: start: 202003, end: 202003
  2. MIRTAZAPINE. [Concomitant]
     Active Substance: MIRTAZAPINE
     Indication: SLEEP DISORDER
     Dates: start: 201907, end: 202003
  3. VENLAFAXINE [Suspect]
     Active Substance: VENLAFAXINE HYDROCHLORIDE
     Dates: start: 202001, end: 202002
  4. VENLAFAXINE [Suspect]
     Active Substance: VENLAFAXINE HYDROCHLORIDE
     Dates: start: 201906, end: 201912

REACTIONS (9)
  - Cartilage injury [Not Recovered/Not Resolved]
  - Joint dislocation [Not Recovered/Not Resolved]
  - Pain in extremity [Unknown]
  - Inflammation [Unknown]
  - Bone disorder [Not Recovered/Not Resolved]
  - Coagulopathy [Recovering/Resolving]
  - Mobility decreased [Unknown]
  - Haemarthrosis [Recovered/Resolved with Sequelae]
  - Pain [Unknown]

NARRATIVE: CASE EVENT DATE: 201909
